FAERS Safety Report 5028021-9 (Version None)
Quarter: 2006Q2

REPORT INFORMATION
  Report Type: 
  Country: None (occurrence: None)
  Receive Date: 20060612
  Receipt Date: 20060525
  Transmission Date: 20061013
  Serious: Yes (Hospitalization, Other)
  Sender: FDA-Public Use
  Company Number: MAG-2006-0000446

PATIENT
  Age: 78 Year
  Sex: Female

DRUGS (7)
  1. OXYCODONE HCL [Suspect]
     Indication: CANCER PAIN
     Dosage: 10 MG, DAILY, ORAL
     Route: 048
     Dates: start: 20050617, end: 20050620
  2. AREDIA [Suspect]
     Indication: MULTIPLE MYELOMA
     Dosage: 30 MG, DAILY, INTRAVENOUS
     Route: 042
     Dates: start: 20040412, end: 20050617
  3. PREDNISOLONE [Suspect]
     Indication: MULTIPLE MYELOMA
     Dosage: 50 MG, DAILY, ORAL
     Route: 048
     Dates: start: 20050617, end: 20050620
  4. ALKERAN [Suspect]
     Indication: MULTIPLE MYELOMA
     Dosage: 10 MG, DAILY,ORAL
     Route: 048
     Dates: start: 20050617, end: 20050620
  5. MAGNESIUM OXIDE HEAVY (MAGNESIUM OXIDE HEAVY) [Concomitant]
  6. PRIMPERAN TAB [Concomitant]
  7. RABEPRAZOLE SODIUM [Concomitant]

REACTIONS (5)
  - BLOOD ALKALINE PHOSPHATASE INCREASED [None]
  - NAUSEA [None]
  - PNEUMONIA [None]
  - RENAL DISORDER [None]
  - RENAL FAILURE [None]
